FAERS Safety Report 6339359-7 (Version None)
Quarter: 2009Q3

REPORT INFORMATION
  Report Type: 
  Country: None (occurrence: None)
  Receive Date: 20090903
  Receipt Date: 20090825
  Transmission Date: 20100115
  Serious: Yes (Hospitalization, Other)
  Sender: FDA-Public Use
  Company Number: TR-ELI_LILLY_AND_COMPANY-TR200906003364

PATIENT
  Age: 55 Year
  Sex: Female

DRUGS (2)
  1. HUMALOG MIX 50/50 [Suspect]
     Indication: DIABETES MELLITUS
     Dosage: 60 IU, 2/D
     Route: 058
     Dates: start: 20090320
  2. LEVEMIR [Concomitant]
     Indication: DIABETES MELLITUS
     Dosage: 54 IU, DAILY (1/D)
     Route: 058
     Dates: start: 20090320

REACTIONS (5)
  - BLOOD GLUCOSE DECREASED [None]
  - CONVULSION [None]
  - DECREASED INTEREST [None]
  - HEMIPLEGIA [None]
  - TREATMENT NONCOMPLIANCE [None]
